FAERS Safety Report 13234010 (Version 3)
Quarter: 2017Q2

REPORT INFORMATION
  Report Type: Spontaneous
  Country: US (occurrence: US)
  Receive Date: 20170215
  Receipt Date: 20170503
  Transmission Date: 20170830
  Serious: No
  Sender: FDA-Public Use
  Company Number: US-BRISTOL-MYERS SQUIBB COMPANY-BMS-2017-013056

PATIENT
  Age: 75 Year
  Sex: Female

DRUGS (1)
  1. WARFARIN SODIUM. [Suspect]
     Active Substance: WARFARIN SODIUM
     Indication: DEEP VEIN THROMBOSIS POSTOPERATIVE
     Dosage: 5 MG, QD
     Route: 048
     Dates: start: 20170116, end: 20170116

REACTIONS (3)
  - Glossodynia [Recovered/Resolved]
  - Swelling face [Recovered/Resolved]
  - Tongue erythema [Unknown]

NARRATIVE: CASE EVENT DATE: 20170116
